FAERS Safety Report 7605318-7 (Version None)
Quarter: 2011Q3

REPORT INFORMATION
  Report Type: 
  Country: None (occurrence: None)
  Receive Date: 20110713
  Receipt Date: 20110628
  Transmission Date: 20111222
  Serious: Yes (Other)
  Sender: FDA-Public Use
  Company Number: US-BAYER-201038641NA

PATIENT
  Age: 23 Year
  Sex: Female
  Weight: 52 kg

DRUGS (2)
  1. ALBUTEROL SULFATE AUTOHALER [Concomitant]
  2. YAZ [Suspect]
     Route: 048
     Dates: start: 20041101, end: 20070101

REACTIONS (2)
  - BILIARY DYSKINESIA [None]
  - GALLBLADDER INJURY [None]
